FAERS Safety Report 7124504-6 (Version None)
Quarter: 2010Q4

REPORT INFORMATION
  Report Type: 
  Country: None (occurrence: None)
  Receive Date: 20101128
  Receipt Date: 20101118
  Transmission Date: 20110411
  Serious: Yes (Other)
  Sender: FDA-Public Use
  Company Number: US-AMGEN-USASP2010001923

PATIENT

DRUGS (10)
  1. NPLATE [Suspect]
     Indication: IDIOPATHIC THROMBOCYTOPENIC PURPURA
     Dosage: 690 A?G, QWK
     Route: 058
     Dates: start: 20091012, end: 20100705
  2. AMBIEN CR [Concomitant]
     Dosage: 125 MG, UNK
  3. SIMVATATINE [Concomitant]
     Dosage: 10 UNK, UNK
  4. PANTOPRAZOLE [Concomitant]
     Dosage: 4 MG, UNK
  5. DIAZEPAM [Concomitant]
     Dosage: 5 MG, UNK
  6. BENZTROPINE MESYLATE [Concomitant]
     Dosage: 0.5 MG, UNK
  7. METOPROLOL SUCCINATE [Concomitant]
     Dosage: 25 MG, UNK
  8. FERROUS SULFATE [Concomitant]
     Dosage: 325 MG, UNK
  9. SEROQUEL XR [Concomitant]
     Dosage: 300 MG, UNK
  10. NEUTRA-PHOS                        /00555301/ [Concomitant]
     Dosage: UNK UNK, TID

REACTIONS (2)
  - INSOMNIA [None]
  - THROMBOCYTOPENIA [None]
